FAERS Safety Report 24073149 (Version 8)
Quarter: 2025Q4

REPORT INFORMATION
  Report Type: Report from Study
  Country: CA (occurrence: CA)
  Receive Date: 20240710
  Receipt Date: 20251230
  Transmission Date: 20260117
  Serious: Yes (Hospitalization, Other)
  Sender: PFIZER
  Company Number: CA-PFIZER INC-202300237601

PATIENT
  Age: 74 Year
  Sex: Female

DRUGS (8)
  1. RUXIENCE [Suspect]
     Active Substance: RITUXIMAB-PVVR
     Indication: Dermatomyositis
     Dosage: 1000 MG, DAY 1 AND 15
     Route: 042
     Dates: start: 20240124, end: 20240207
  2. RUXIENCE [Suspect]
     Active Substance: RITUXIMAB-PVVR
     Indication: Interstitial lung disease
     Dosage: 1000 MG, DAY 1 AND 15
     Route: 042
     Dates: start: 20240808, end: 20240822
  3. RUXIENCE [Suspect]
     Active Substance: RITUXIMAB-PVVR
     Indication: Rheumatoid arthritis
     Dosage: 1000 MG, DAY 1 AND 15
     Route: 042
     Dates: start: 20250623, end: 20250710
  4. CELLCEPT [Concomitant]
     Active Substance: MYCOPHENOLATE MOFETIL
     Dosage: 2.5 G, DAILY
  5. PREDNISONE [Concomitant]
     Active Substance: PREDNISONE
     Dosage: 10 MG, DAILY
  6. VITA D [COLECALCIFEROL] [Concomitant]
     Dosage: UNK
  7. SULFASALAZINE [Concomitant]
     Active Substance: SULFASALAZINE
     Indication: Dermatomyositis
     Dosage: 200 MG, 1X/DAY
  8. SULFASALAZINE [Concomitant]
     Active Substance: SULFASALAZINE
     Indication: Interstitial lung disease

REACTIONS (20)
  - Stress cardiomyopathy [Unknown]
  - Cataract [Unknown]
  - Pyelocaliectasis [Unknown]
  - Pelvi-ureteric obstruction [Unknown]
  - Atelectasis [Unknown]
  - Condition aggravated [Not Recovered/Not Resolved]
  - Platelet count increased [Recovered/Resolved]
  - C-reactive protein increased [Unknown]
  - Tooth fracture [Unknown]
  - Red blood cell count increased [Unknown]
  - LE cells present [Unknown]
  - Neutrophil count increased [Unknown]
  - Lymphocyte count decreased [Unknown]
  - Granulocyte count increased [Unknown]
  - White blood cell count increased [Unknown]
  - Mood swings [Unknown]
  - Decreased appetite [Unknown]
  - Asthenia [Unknown]
  - Headache [Unknown]
  - Pain [Unknown]

NARRATIVE: CASE EVENT DATE: 20240101
